FAERS Safety Report 11103412 (Version 1)
Quarter: 2015Q2

REPORT INFORMATION
  Report Type: Spontaneous
  Country: GB (occurrence: GB)
  Receive Date: 20150511
  Receipt Date: 20150511
  Transmission Date: 20150821
  Serious: Yes (Hospitalization, Other)
  Sender: FDA-Public Use
  Company Number: GB-WATSON-2015-09080

PATIENT
  Age: 49 Year
  Sex: Female

DRUGS (5)
  1. LANSOPRAZOLE (UNKNOWN) [Interacting]
     Active Substance: LANSOPRAZOLE
     Indication: HELICOBACTER INFECTION
     Dosage: 30 MG, BID
     Route: 065
  2. LACRILUBE [Concomitant]
     Indication: DRY EYE
     Dosage: UNK, PRN
     Route: 031
  3. CELLUVISC                          /00007002/ [Concomitant]
     Indication: DRY EYE
     Dosage: UNK
     Route: 031
  4. CLARITHROMYCIN (UNKNOWN) [Suspect]
     Active Substance: CLARITHROMYCIN
     Indication: HELICOBACTER INFECTION
     Dosage: 500 MG, BID
     Route: 065
  5. AMOXICILLIN. [Interacting]
     Active Substance: AMOXICILLIN
     Indication: HELICOBACTER INFECTION
     Dosage: 1 G, BID
     Route: 065

REACTIONS (2)
  - Drug interaction [Recovered/Resolved]
  - Psychotic disorder [Recovered/Resolved]
